FAERS Safety Report 21411807 (Version 3)
Quarter: 2023Q1

REPORT INFORMATION
  Report Type: Spontaneous
  Country: US (occurrence: US)
  Receive Date: 20221005
  Receipt Date: 20230120
  Transmission Date: 20230417
  Serious: No
  Sender: FDA-Public Use
  Company Number: US-ELI_LILLY_AND_COMPANY-US202210001249

PATIENT
  Age: 68 Year
  Sex: Female

DRUGS (8)
  1. BASAGLAR [Interacting]
     Active Substance: INSULIN GLARGINE
     Indication: Type 2 diabetes mellitus
     Dosage: UNK UNK, UNKNOWN
     Route: 065
     Dates: start: 202207
  2. BASAGLAR [Interacting]
     Active Substance: INSULIN GLARGINE
     Indication: Type 2 diabetes mellitus
     Dosage: UNK UNK, UNKNOWN
     Route: 065
     Dates: start: 202207
  3. BASAGLAR [Interacting]
     Active Substance: INSULIN GLARGINE
     Dosage: UNK UNK, UNKNOWN
     Route: 065
     Dates: start: 202207
  4. BASAGLAR [Interacting]
     Active Substance: INSULIN GLARGINE
     Dosage: UNK UNK, UNKNOWN
     Route: 065
     Dates: start: 202207
  5. BASAGLAR [Interacting]
     Active Substance: INSULIN GLARGINE
     Dosage: UNK, UNKNOWN (DOSE REDUCED)
     Route: 065
  6. BASAGLAR [Interacting]
     Active Substance: INSULIN GLARGINE
     Dosage: UNK, UNKNOWN (DOSE REDUCED)
     Route: 065
  7. TOPROL XL [Interacting]
     Active Substance: METOPROLOL SUCCINATE
     Indication: Product used for unknown indication
     Dosage: UNK, UNKNOWN
     Route: 065
  8. OZEMPIC [Concomitant]
     Active Substance: SEMAGLUTIDE
     Indication: Product used for unknown indication

REACTIONS (8)
  - Abdominal pain upper [Unknown]
  - Drug interaction [Unknown]
  - Heart rate irregular [Unknown]
  - Blood pressure increased [Unknown]
  - Injection site bruising [Unknown]
  - Diarrhoea [Unknown]
  - Blood glucose increased [Not Recovered/Not Resolved]
  - Drug ineffective [Not Recovered/Not Resolved]

NARRATIVE: CASE EVENT DATE: 20221001
